FAERS Safety Report 23527707 (Version 2)
Quarter: 2024Q1

REPORT INFORMATION
  Report Type: Report from Study
  Country: CA (occurrence: CA)
  Receive Date: 20240215
  Receipt Date: 20240312
  Transmission Date: 20240409
  Serious: Yes (Other)
  Sender: FDA-Public Use
  Company Number: CA-BAUSCH-BL-2024-001759

PATIENT
  Age: 55 Year
  Sex: Female

DRUGS (3)
  1. CONTRAVE [Suspect]
     Active Substance: BUPROPION HYDROCHLORIDE\NALTREXONE HYDROCHLORIDE
     Indication: Weight control
     Dosage: 90/8 MG, 1 TAB Q AM
     Route: 048
     Dates: start: 20240130, end: 20240205
  2. CONTRAVE [Suspect]
     Active Substance: BUPROPION HYDROCHLORIDE\NALTREXONE HYDROCHLORIDE
     Dosage: 90/8 MG, 1 TAB Q AM, 1 TAB Q PM
     Route: 048
     Dates: start: 20240206, end: 20240208
  3. CONTRAVE [Suspect]
     Active Substance: BUPROPION HYDROCHLORIDE\NALTREXONE HYDROCHLORIDE
     Dosage: 90/8 MG, DECREASED TO 1 TAB/DAY
     Route: 048
     Dates: start: 20240209, end: 20240217

REACTIONS (10)
  - Delirium [Recovered/Resolved]
  - Tachyphrenia [Recovered/Resolved]
  - Neck pain [Not Recovered/Not Resolved]
  - Paraesthesia [Recovered/Resolved]
  - Insomnia [Recovered/Resolved]
  - Anxiety [Not Recovered/Not Resolved]
  - Abnormal dreams [Recovered/Resolved]
  - Therapy interrupted [Unknown]
  - Inappropriate schedule of product administration [Unknown]
  - Labelled drug-food interaction issue [Unknown]

NARRATIVE: CASE EVENT DATE: 20240130
